FAERS Safety Report 9403639 (Version 1)
Quarter: 2013Q3

REPORT INFORMATION
  Report Type: Spontaneous
  Country: AU (occurrence: AU)
  Receive Date: 20130717
  Receipt Date: 20130717
  Transmission Date: 20140515
  Serious: Yes (Hospitalization)
  Sender: FDA-Public Use
  Company Number: AU-009507513-1307AUS005378

PATIENT
  Age: 62 Year
  Sex: Male

DRUGS (17)
  1. ROCURONIUM BROMIDE [Suspect]
     Dosage: UNK
  2. EPINEPHRINE [Concomitant]
     Dosage: UNK
  3. ASPIRIN [Concomitant]
     Dosage: 100 MG, QD
     Route: 048
  4. CALCIUM (UNSPECIFIED) [Concomitant]
     Dosage: UNK
  5. CEFAZOLIN SODIUM [Concomitant]
     Dosage: UNK
  6. HEPARIN SODIUM [Concomitant]
     Dosage: UNK
  7. HYDROCORTISONE ACETATE [Concomitant]
     Dosage: UNK
  8. METARAMINOL [Concomitant]
     Dosage: UNK
  9. METOPROLOL [Concomitant]
     Dosage: 200 MG, QD
     Route: 048
  10. MIDAZOLAM [Concomitant]
     Dosage: UNK
  11. PHENYLEPHRINE [Concomitant]
     Dosage: UNK
  12. PLASMA-LYTE [Concomitant]
     Dosage: UNK
  13. PROPOFOL [Concomitant]
     Dosage: UNK
  14. REMIFENTANIL HYDROCHLORIDE [Concomitant]
     Dosage: UNK
  15. ROSUVASTATIN CALCIUM [Concomitant]
     Dosage: 10 MG, QD
     Route: 048
  16. VALSARTAN [Concomitant]
     Dosage: 320 MG, UNK
     Route: 048
  17. METOCLOPRAMIDE HYDROCHLORIDE [Suspect]

REACTIONS (1)
  - Airway complication of anaesthesia [Recovered/Resolved]
